FAERS Safety Report 13512602 (Version 1)
Quarter: 2017Q2

REPORT INFORMATION
  Report Type: Spontaneous
  Country: US (occurrence: US)
  Receive Date: 20170504
  Receipt Date: 20170504
  Transmission Date: 20170830
  Serious: Yes (Other)
  Sender: FDA-Public Use
  Company Number: US-ASTRAZENECA-2017SE46901

PATIENT
  Sex: Female

DRUGS (1)
  1. NEXIUM 24HR [Suspect]
     Active Substance: ESOMEPRAZOLE MAGNESIUM
     Indication: DYSPHAGIA
     Dosage: 1 DF (1 TABLET LAST NIGHT AND 1 TABLET THIS MORNING)
     Route: 048

REACTIONS (4)
  - Dysphagia [Unknown]
  - Product use in unapproved indication [Unknown]
  - Choking [Unknown]
  - Product use complaint [Unknown]
